FAERS Safety Report 21619180 (Version 3)
Quarter: 2023Q1

REPORT INFORMATION
  Report Type: Report from Study
  Country: US (occurrence: US)
  Receive Date: 20221120
  Receipt Date: 20230116
  Transmission Date: 20230417
  Serious: No
  Sender: FDA-Public Use
  Company Number: US-ABBVIE-4205829

PATIENT
  Age: 64 Year
  Sex: Female

DRUGS (2)
  1. IMBRUVICA [Suspect]
     Active Substance: IBRUTINIB
     Indication: Waldenstrom^s macroglobulinaemia
     Route: 048
  2. IMBRUVICA [Suspect]
     Active Substance: IBRUTINIB
     Indication: Waldenstrom^s macroglobulinaemia
     Route: 048
     Dates: start: 20210521

REACTIONS (9)
  - Nasopharyngitis [Unknown]
  - Lung disorder [Unknown]
  - Alopecia [Unknown]
  - Bronchial disorder [Unknown]
  - Blood immunoglobulin D decreased [Unknown]
  - Skin disorder [Unknown]
  - Blood immunoglobulin A decreased [Unknown]
  - Blood immunoglobulin M increased [Unknown]
  - Nail disorder [Unknown]

NARRATIVE: CASE EVENT DATE: 20221101
